FAERS Safety Report 11943629 (Version 1)
Quarter: 2016Q1

REPORT INFORMATION
  Report Type: Spontaneous
  Country: US (occurrence: US)
  Receive Date: 20160125
  Receipt Date: 20160125
  Transmission Date: 20160526
  Serious: No
  Sender: FDA-Public Use
  Company Number: US-UNITED THERAPEUTICS-UNT-2015-013189

PATIENT
  Sex: Male
  Weight: 151.47 kg

DRUGS (5)
  1. REMODULIN [Suspect]
     Active Substance: TREPROSTINIL
     Indication: PULMONARY ARTERIAL HYPERTENSION
     Dosage: 0.002 ?G/KG, CONTINUING
     Route: 058
     Dates: start: 20151009
  2. ADCIRCA [Concomitant]
     Active Substance: TADALAFIL
     Indication: PRODUCT USED FOR UNKNOWN INDICATION
  3. REVATIO [Concomitant]
     Active Substance: SILDENAFIL CITRATE
     Indication: PRODUCT USED FOR UNKNOWN INDICATION
  4. WARFARIN [Suspect]
     Active Substance: WARFARIN
     Indication: PRODUCT USED FOR UNKNOWN INDICATION
  5. REMODULIN [Suspect]
     Active Substance: TREPROSTINIL
     Dosage: 0.006 ?G/KG/MIN, CONTINUING
     Route: 058

REACTIONS (8)
  - Infusion site erythema [Unknown]
  - Infusion site pain [Unknown]
  - Infusion site warmth [Unknown]
  - Haemoptysis [Unknown]
  - Infusion site haemorrhage [Unknown]
  - International normalised ratio increased [Unknown]
  - Arrhythmia [Unknown]
  - Infusion site infection [Unknown]

NARRATIVE: CASE EVENT DATE: 2015
